FAERS Safety Report 13224778 (Version 2)
Quarter: 2017Q1

REPORT INFORMATION
  Report Type: Spontaneous
  Country: PL (occurrence: PL)
  Receive Date: 20170213
  Receipt Date: 20170228
  Transmission Date: 20170428
  Serious: Yes (Other)
  Sender: FDA-Public Use
  Company Number: PL-ROCHE-1889251

PATIENT
  Age: 47 Year
  Sex: Female

DRUGS (8)
  1. FOLINIC ACID [Suspect]
     Active Substance: LEUCOVORIN
     Indication: RECTAL ADENOCARCINOMA
     Route: 065
     Dates: start: 201310, end: 201509
  2. FLUOROURACIL. [Suspect]
     Active Substance: FLUOROURACIL
     Indication: RECTAL ADENOCARCINOMA
     Route: 065
     Dates: start: 201310, end: 201509
  3. IRINOTECAN [Concomitant]
     Active Substance: IRINOTECAN
     Route: 065
     Dates: start: 201207
  4. IRINOTECAN [Concomitant]
     Active Substance: IRINOTECAN
     Dosage: THIRD-LINE PALLIATIVE CHEMOTHERAPY
     Route: 065
  5. XELODA [Concomitant]
     Active Substance: CAPECITABINE
     Route: 065
     Dates: start: 201207
  6. OXALIPLATIN. [Suspect]
     Active Substance: OXALIPLATIN
     Indication: RECTAL ADENOCARCINOMA
     Route: 065
     Dates: start: 201310, end: 201509
  7. XELODA [Concomitant]
     Active Substance: CAPECITABINE
     Dosage: THIRD-LINE PALLIATIVE CHEMOTHERAPY
     Route: 065
  8. BEVACIZUMAB [Suspect]
     Active Substance: BEVACIZUMAB
     Indication: RECTAL ADENOCARCINOMA
     Route: 065
     Dates: start: 201310, end: 201509

REACTIONS (8)
  - Gait disturbance [Unknown]
  - Neoplasm [Unknown]
  - Polyneuropathy [Unknown]
  - Pain [Unknown]
  - Diarrhoea [Unknown]
  - Fatigue [Unknown]
  - Metastatic neoplasm [Unknown]
  - Blood pressure increased [Unknown]
